FAERS Safety Report 8997324 (Version 6)
Quarter: 2013Q4

REPORT INFORMATION
  Report Type: Spontaneous
  Country: US (occurrence: US)
  Receive Date: 20130104
  Receipt Date: 20131204
  Transmission Date: 20140711
  Serious: Yes (Hospitalization, Disabling, Other)
  Sender: FDA-Public Use
  Company Number: US-009507513-1212USA010565

PATIENT
  Sex: Female
  Weight: 72.56 kg

DRUGS (2)
  1. FOSAMAX [Suspect]
     Indication: OSTEOPOROSIS
     Dosage: 10 MG, QD
     Route: 048
     Dates: end: 2001
  2. FOSAMAX [Suspect]
     Indication: OSTEOPENIA
     Dosage: 70 MG, QW
     Route: 048
     Dates: start: 2001, end: 201109

REACTIONS (15)
  - Intramedullary rod insertion [Not Recovered/Not Resolved]
  - Low turnover osteopathy [Not Recovered/Not Resolved]
  - Osteoporosis [Not Recovered/Not Resolved]
  - Femur fracture [Not Recovered/Not Resolved]
  - Stress fracture [Not Recovered/Not Resolved]
  - Colon cancer [Unknown]
  - Femur fracture [Not Recovered/Not Resolved]
  - Laceration [Unknown]
  - Laceration [Unknown]
  - Excoriation [Unknown]
  - Osteoarthritis [Unknown]
  - Arthritis [Unknown]
  - Gastrointestinal hypermotility [Unknown]
  - Diabetes mellitus [Unknown]
  - Pain in extremity [Unknown]
